FAERS Safety Report 9525867 (Version 1)
Quarter: 2013Q3

REPORT INFORMATION
  Report Type: Spontaneous
  Country: US (occurrence: None)
  Receive Date: 20130913
  Receipt Date: 20130913
  Transmission Date: 20140515
  Serious: No
  Sender: FDA-Public Use
  Company Number: None

PATIENT
  Age: 24 Year
  Sex: Female

DRUGS (4)
  1. KEPPRA [Suspect]
     Indication: EPILEPSY
     Dosage: NOT PROVIDED?2006 (1 YEAR)
     Dates: start: 2006
  2. TOPAMAX [Suspect]
     Indication: EPILEPSY
     Dosage: NOT PROVIDED?~2010
     Dates: start: 2010
  3. LAMICTAL [Concomitant]
  4. VNS [Concomitant]

REACTIONS (8)
  - Weight increased [None]
  - Nausea [None]
  - Migraine [None]
  - Insomnia [None]
  - Mood swings [None]
  - Drug ineffective [None]
  - Ill-defined disorder [None]
  - Dysphonia [None]
